FAERS Safety Report 7403356-0 (Version None)
Quarter: 2011Q2

REPORT INFORMATION
  Report Type: 
  Country: None (occurrence: None)
  Receive Date: 20110408
  Receipt Date: 20110401
  Transmission Date: 20111010
  Serious: Yes (Hospitalization)
  Sender: FDA-Public Use
  Company Number: A0867249A

PATIENT
  Age: 48 Year
  Sex: Male
  Weight: 79.5 kg

DRUGS (11)
  1. STARLIX [Concomitant]
  2. ADVICOR [Concomitant]
  3. METOPROLOL [Concomitant]
  4. VYTORIN [Concomitant]
  5. AVANDARYL [Suspect]
     Indication: DIABETES MELLITUS
     Route: 048
     Dates: start: 20060101
  6. AVANDAMET [Suspect]
     Indication: DIABETES MELLITUS
     Route: 048
     Dates: start: 20040101
  7. GLUCOPHAGE [Concomitant]
  8. PLAVIX [Concomitant]
  9. CLOPIDOGREL [Concomitant]
  10. AVANDIA [Suspect]
     Indication: DIABETES MELLITUS
     Route: 048
     Dates: start: 20040101
  11. LIPITOR [Concomitant]

REACTIONS (2)
  - MYOCARDIAL INFARCTION [None]
  - CORONARY ARTERY DISEASE [None]
